FAERS Safety Report 25642384 (Version 3)
Quarter: 2025Q3

REPORT INFORMATION
  Report Type: Spontaneous
  Country: JP (occurrence: JP)
  Receive Date: 20250805
  Receipt Date: 20250905
  Transmission Date: 20251021
  Serious: Yes (Hospitalization, Other)
  Sender: NOVO NORDISK
  Company Number: JP-NOVOPROD-1489650

PATIENT
  Age: 9 Decade
  Sex: Female

DRUGS (2)
  1. NOVORAPID [Suspect]
     Active Substance: INSULIN ASPART
     Indication: Latent autoimmune diabetes in adults
     Route: 058
     Dates: start: 2014, end: 202504
  2. INSULIN GLARGINE [Concomitant]
     Active Substance: INSULIN GLARGINE
     Indication: Latent autoimmune diabetes in adults
     Route: 058
     Dates: end: 202504

REACTIONS (5)
  - Fracture [Recovered/Resolved]
  - Atrial fibrillation [Recovered/Resolved]
  - Cardio-respiratory arrest [Recovered/Resolved]
  - Pneumonia aspiration [Recovered/Resolved]
  - Hepatic function abnormal [Unknown]

NARRATIVE: CASE EVENT DATE: 20250101
